FAERS Safety Report 7093450-9 (Version None)
Quarter: 2010Q4

REPORT INFORMATION
  Report Type: 
  Country: None (occurrence: None)
  Receive Date: 20101110
  Receipt Date: 20101103
  Transmission Date: 20110411
  Serious: Yes (Hospitalization, Other)
  Sender: FDA-Public Use
  Company Number: US-AMGEN-QUU361875

PATIENT

DRUGS (4)
  1. ENBREL [Suspect]
     Indication: RHEUMATOID ARTHRITIS
     Dosage: 50 MG, QWK
     Route: 058
     Dates: start: 19970504
  2. ENBREL [Suspect]
     Dates: start: 19970504
  3. METHOTREXATE [Concomitant]
     Dosage: 4 MG, QWK
     Dates: start: 19970101
  4. METHOTREXATE [Concomitant]
     Dates: start: 19970101

REACTIONS (7)
  - BRONCHITIS [None]
  - DEFORMITY [None]
  - INJECTION SITE ERYTHEMA [None]
  - INJECTION SITE PAIN [None]
  - INJECTION SITE PRURITUS [None]
  - IRON DEFICIENCY ANAEMIA [None]
  - PAIN IN EXTREMITY [None]
